FAERS Safety Report 12608423 (Version 1)
Quarter: 2016Q3

REPORT INFORMATION
  Report Type: Report from Study
  Country: GB (occurrence: GB)
  Receive Date: 20160729
  Receipt Date: 20160729
  Transmission Date: 20161109
  Serious: Yes (Other)
  Sender: FDA-Public Use
  Company Number: PHFR2016GB006098

PATIENT
  Age: 25 Year
  Sex: Female

DRUGS (3)
  1. NORTRIPTYLINE [Concomitant]
     Active Substance: NORTRIPTYLINE
     Indication: PRODUCT USED FOR UNKNOWN INDICATION
     Dosage: 50 MG, NOCTE
     Route: 065
  2. FLUOXETINE [Concomitant]
     Active Substance: FLUOXETINE HYDROCHLORIDE
     Indication: PRODUCT USED FOR UNKNOWN INDICATION
     Dosage: UNK
     Route: 065
  3. GILENYA [Suspect]
     Active Substance: FINGOLIMOD HYDROCHLORIDE
     Indication: RELAPSING-REMITTING MULTIPLE SCLEROSIS
     Dosage: 0.5 MG, UNK
     Route: 065
     Dates: start: 20140411

REACTIONS (18)
  - Memory impairment [Unknown]
  - Visual pathway disorder [Unknown]
  - Limb discomfort [Unknown]
  - Red blood cell count decreased [Unknown]
  - Micturition urgency [Unknown]
  - Constipation [Unknown]
  - Retinal disorder [Unknown]
  - Aphonia [Unknown]
  - Blood bilirubin increased [Unknown]
  - Lymphocyte count decreased [Unknown]
  - Nasopharyngitis [Unknown]
  - Neutrophil count decreased [Unknown]
  - Somnolence [Unknown]
  - Fatigue [Not Recovered/Not Resolved]
  - Optic atrophy [Unknown]
  - Abdominal discomfort [Unknown]
  - Alopecia [Recovering/Resolving]
  - White blood cell count decreased [Unknown]

NARRATIVE: CASE EVENT DATE: 20140703
